FAERS Safety Report 12942753 (Version 1)
Quarter: 2016Q4

REPORT INFORMATION
  Report Type: Spontaneous
  Country: US (occurrence: US)
  Receive Date: 20161114
  Receipt Date: 20161114
  Transmission Date: 20170207
  Serious: No
  Sender: FDA-Public Use
  Company Number: US-EMD SERONO-8118412

PATIENT
  Age: 50 Year
  Sex: Female

DRUGS (1)
  1. REBIF [Suspect]
     Active Substance: INTERFERON BETA-1A
     Indication: PRODUCT USED FOR UNKNOWN INDICATION

REACTIONS (8)
  - Injection site pain [Unknown]
  - Syncope [Unknown]
  - Asthenia [Unknown]
  - Drug intolerance [Unknown]
  - Speech disorder [Unknown]
  - Influenza like illness [Unknown]
  - Pruritus [Unknown]
  - Vomiting [Unknown]
